FAERS Safety Report 4334429-7 (Version None)
Quarter: 2004Q1

REPORT INFORMATION
  Report Type: 
  Country: None (occurrence: None)
  Receive Date: 20040329
  Receipt Date: 20040219
  Transmission Date: 20041129
  Serious: No
  Sender: FDA-Public Use
  Company Number: 04P-163-0250697-00

PATIENT
  Age: 45 Year
  Sex: Female
  Weight: 81.6475 kg

DRUGS (7)
  1. HUMIRA [Suspect]
     Indication: RHEUMATOID ARTHRITIS
     Dosage: 40 MG, 1 IN 2 WK, SUBCUTANEOUS
     Route: 058
     Dates: start: 20030701
  2. GABAPENTIN [Concomitant]
  3. PREDNISONE [Concomitant]
  4. OXYCODONE HCL [Concomitant]
  5. TRAZODONE HCL [Concomitant]
  6. SERTRALINE HYDROCHLORIDE [Concomitant]
  7. HORMONE REPLACEMENT [Concomitant]

REACTIONS (2)
  - HYPERSOMNIA [None]
  - SOMNOLENCE [None]
